FAERS Safety Report 5931898-3 (Version None)
Quarter: 2008Q4

REPORT INFORMATION
  Report Type: 
  Country: None (occurrence: None)
  Receive Date: 20081022
  Receipt Date: 20081010
  Transmission Date: 20090506
  Serious: Yes (Hospitalization)
  Sender: FDA-Public Use
  Company Number: GXKR2008NZ09729

PATIENT
  Age: 69 Year
  Sex: Female
  Weight: 115 kg

DRUGS (4)
  1. SALBUTAMOL (NGX) (SALBUTAMOL) UNKNOWN [Suspect]
     Indication: ASTHMA
     Dosage: 5 MG, TID, INHALATION
     Route: 055
  2. SYMBICORT TURBUHALER ^DRACO^ (BUDESONIDE, FORMOTEROL FUMARATE) 200/6UG [Suspect]
     Indication: ASTHMA
     Dosage: 3 DF, BID, INHALATION
     Route: 055
  3. COMBIVENT [Suspect]
     Indication: ASTHMA
     Dosage: UP TO 12 PUFFS PER DAY, INHALATION
     Route: 055
  4. OMEPRAZOLE [Concomitant]

REACTIONS (9)
  - ASTHMA [None]
  - CONDITION AGGRAVATED [None]
  - DRUG ABUSE [None]
  - DRUG DEPENDENCE [None]
  - HIATUS HERNIA [None]
  - IMMOBILE [None]
  - SLEEP DISORDER [None]
  - TREATMENT NONCOMPLIANCE [None]
  - WEIGHT INCREASED [None]
